FAERS Safety Report 8177137-7 (Version None)
Quarter: 2012Q1

REPORT INFORMATION
  Report Type: 
  Country: None (occurrence: None)
  Receive Date: 20120301
  Receipt Date: 20120130
  Transmission Date: 20120608
  Serious: Yes (Other)
  Sender: FDA-Public Use
  Company Number: JP-GLAXOSMITHKLINE-B0779094A

PATIENT
  Age: 72 Year
  Sex: Female
  Weight: 45 kg

DRUGS (4)
  1. HYCAMTIN [Suspect]
     Indication: OVARIAN CANCER RECURRENT
     Dosage: 1.8MG PER DAY
     Route: 042
     Dates: start: 20120116, end: 20120120
  2. PRIMPERAN TAB [Concomitant]
     Dosage: 15MG PER DAY
     Route: 048
     Dates: start: 20120116
  3. ONDANSETRON [Concomitant]
     Dosage: 4MG PER DAY
     Route: 042
     Dates: start: 20120116
  4. DEXAMETHASONE SODIUM PHOSPHATE [Concomitant]
     Dosage: 1.65MG PER DAY
     Route: 042
     Dates: start: 20120116

REACTIONS (5)
  - PLATELET COUNT DECREASED [None]
  - HAEMOGLOBIN DECREASED [None]
  - NEUTROPHIL COUNT DECREASED [None]
  - WHITE BLOOD CELL COUNT DECREASED [None]
  - NEUROPATHY PERIPHERAL [None]
